FAERS Safety Report 5905851-X (Version None)
Quarter: 2008Q4

REPORT INFORMATION
  Report Type: 
  Country: None (occurrence: None)
  Receive Date: 20081002
  Receipt Date: 20080922
  Transmission Date: 20090506
  Serious: Yes (Hospitalization)
  Sender: FDA-Public Use
  Company Number: CA-JNJFOC-20080905488

PATIENT
  Sex: Male

DRUGS (2)
  1. REMICADE [Suspect]
     Dosage: EVERY 6 TO 8 WEEKS
     Route: 042
  2. REMICADE [Suspect]
     Indication: DRUG USE FOR UNKNOWN INDICATION
     Dosage: LOADING DOSE DURING TRIAL PERIOD APPROXIMATELY ^2000^.
     Route: 042

REACTIONS (2)
  - ABDOMINAL PAIN UPPER [None]
  - THERAPEUTIC PROCEDURE [None]
